FAERS Safety Report 18528344 (Version 3)
Quarter: 2020Q4

REPORT INFORMATION
  Report Type: Spontaneous
  Country: US (occurrence: US)
  Receive Date: 20201120
  Receipt Date: 20201217
  Transmission Date: 20210114
  Serious: Yes (Hospitalization)
  Sender: FDA-Public Use
  Company Number: US-AMGEN-USASP2020183633

PATIENT
  Age: 64 Year
  Sex: Female

DRUGS (18)
  1. ARIXTRA [Concomitant]
     Active Substance: FONDAPARINUX SODIUM
     Dosage: 7.5 MILLIGRAM, QD
     Route: 058
  2. MVASI [Suspect]
     Active Substance: BEVACIZUMAB-AWWB
     Indication: VULVAL CANCER
     Dosage: UNK
     Route: 065
     Dates: start: 2020
  3. LIDODERM [Concomitant]
     Active Substance: LIDOCAINE
     Dosage: UNK UNK, QD (REMOVE + DISCARD PATCH WITHIN 12 HOURS OR AS DIRECTED BY MD)
  4. MSIR [Concomitant]
     Active Substance: MORPHINE SULFATE
     Indication: PAIN
     Dosage: 0.75 MILLILITER (15MG TOTAL), Q3H
     Route: 060
  5. PROAIR HFA [Concomitant]
     Active Substance: ALBUTEROL SULFATE
     Dosage: UNK UNK, AS NECESSARY
  6. CYMBALTA [Concomitant]
     Active Substance: DULOXETINE HYDROCHLORIDE
     Dosage: 30 MILLIGRAM, BID
     Route: 048
  7. DURAGESIC [Concomitant]
     Active Substance: FENTANYL
     Dosage: PLACE 1 PATCH ONTO THE SKIN EVERY THIRD DAY
  8. SYNTHROID [Concomitant]
     Active Substance: LEVOTHYROXINE SODIUM
     Dosage: UNK UNK, QD
     Route: 048
  9. NICODERM CQ [Concomitant]
     Active Substance: NICOTINE
     Dosage: PLACE 1 PATCH ONTO THE SKIN, QD
  10. DELTASONE [DEXAMETHASONE] [Concomitant]
     Active Substance: DEXAMETHASONE
     Dosage: 5 MILLIGRAM, QD (TAKE WITH FOOD)
     Route: 048
  11. XANAX [Concomitant]
     Active Substance: ALPRAZOLAM
     Indication: ANXIETY
     Dosage: 0.5 MILLIGRAM, TID
     Route: 048
  12. NEURONTIN [Concomitant]
     Active Substance: GABAPENTIN
     Dosage: 600+300=900MG, TID
  13. CLARITIN [Concomitant]
     Active Substance: LORATADINE
     Dosage: 10 MILLIGRAM, QD
     Route: 048
  14. ATIVAN [Concomitant]
     Active Substance: LORAZEPAM
     Indication: ANXIETY
     Dosage: 0.5 MILLIGRAM (1MG TOTAL), Q8H AS NEEDED
     Route: 048
  15. ISOPTO ATROPINE [Concomitant]
     Active Substance: ATROPINE SULFATE
     Dosage: PLACE 2 DROPS UNDER THE TONGUE, Q6H AS NEEDED
     Route: 060
  16. AMARYL [Concomitant]
     Active Substance: GLIMEPIRIDE
     Dosage: 2 MILLIGRAM, QD (BEFORE BREAKFAST) ONLY ON CHEMOTREATMENT DAYS
     Route: 048
  17. OXYGEN. [Concomitant]
     Active Substance: OXYGEN
     Dosage: 1 L/MIN, QD AS NEEDED
     Route: 045
  18. EMLA [Concomitant]
     Active Substance: LIDOCAINE\PRILOCAINE
     Dosage: APPLY TO PORT SITE 1 TO 2 HOURS PRIOR TO ACCESSING THE PORT

REACTIONS (2)
  - Venous thrombosis [Recovering/Resolving]
  - Off label use [Unknown]

NARRATIVE: CASE EVENT DATE: 20201103
